FAERS Safety Report 6913912-1 (Version None)
Quarter: 2010Q3

REPORT INFORMATION
  Report Type: 
  Country: None (occurrence: None)
  Receive Date: 20100806
  Receipt Date: 20100806
  Transmission Date: 20110219
  Serious: Yes (Other)
  Sender: FDA-Public Use
  Company Number: None

PATIENT
  Sex: Female

DRUGS (1)
  1. REMICADE [Suspect]
     Indication: POLYARTHRITIS
     Dosage: 5 MG/KG Q6WKS IV
     Route: 042
     Dates: start: 20061010, end: 20100607

REACTIONS (1)
  - PANCREATIC MASS [None]
